FAERS Safety Report 19291177 (Version 1)
Quarter: 2021Q2

REPORT INFORMATION
  Report Type: Spontaneous
  Country: GB (occurrence: GB)
  Receive Date: 20210523
  Receipt Date: 20210523
  Transmission Date: 20210717
  Serious: Yes (Other)
  Sender: FDA-Public Use
  Company Number: GB-TEVA-2021-GB-1913347

PATIENT
  Age: 70 Year
  Sex: Female
  Weight: 59.41 kg

DRUGS (2)
  1. LEVOTHYROXINE. [Suspect]
     Active Substance: LEVOTHYROXINE
     Indication: THYROID DISORDER
     Dosage: 25 MG, 125MG DAILY (1 INTO 100MG, 1 INTO 25MG).
     Route: 048
     Dates: start: 20210418, end: 20210425
  2. LEVOTHYROXINE. [Concomitant]
     Active Substance: LEVOTHYROXINE
     Indication: THYROID DISORDER
     Dosage: 100 MG

REACTIONS (4)
  - Reaction to excipient [Unknown]
  - Headache [Recovering/Resolving]
  - Palpitations [Recovering/Resolving]
  - Abnormal weight gain [Recovering/Resolving]

NARRATIVE: CASE EVENT DATE: 20210419
